FAERS Safety Report 6885027-2 (Version None)
Quarter: 2010Q3

REPORT INFORMATION
  Report Type: 
  Country: None (occurrence: None)
  Receive Date: 20100727
  Receipt Date: 20100720
  Transmission Date: 20110219
  Serious: Yes (Hospitalization)
  Sender: FDA-Public Use
  Company Number: JP-BAXTER-2010BH019113

PATIENT
  Age: 61 Year
  Sex: Female
  Weight: 55 kg

DRUGS (2)
  1. EXTRANEAL [Suspect]
     Indication: DIABETIC NEPHROPATHY
     Route: 033
     Dates: start: 20080801
  2. DIANEAL LOW CALCIUM W/ DEXTROSE 1.5% [Suspect]
     Indication: DIABETIC NEPHROPATHY
     Route: 033
     Dates: start: 20080801

REACTIONS (1)
  - ULTRAFILTRATION FAILURE [None]
